FAERS Safety Report 18664232 (Version 6)
Quarter: 2022Q3

REPORT INFORMATION
  Report Type: Spontaneous
  Country: GB (occurrence: GB)
  Receive Date: 20201225
  Receipt Date: 20220915
  Transmission Date: 20221026
  Serious: Yes (Other)
  Sender: FDA-Public Use
  Company Number: GB-BIOVITRUM-2020GB7867

PATIENT
  Age: 46 Year
  Sex: Male

DRUGS (1)
  1. ORFADIN [Suspect]
     Active Substance: NITISINONE
     Indication: Alkaptonuria
     Dosage: 2 MG
     Dates: start: 2013

REACTIONS (6)
  - Lenticular opacities [Unknown]
  - Cataract [Unknown]
  - Cataract nuclear [Unknown]
  - Amino acid level increased [Unknown]
  - Conjunctival disorder [Unknown]
  - Scleral disorder [Unknown]

NARRATIVE: CASE EVENT DATE: 20130101
